FAERS Safety Report 19052487 (Version 1)
Quarter: 2021Q1

REPORT INFORMATION
  Report Type: Spontaneous
  Country: US (occurrence: US)
  Receive Date: 20210324
  Receipt Date: 20210324
  Transmission Date: 20210420
  Serious: Yes (Life-Threatening, Hospitalization, Other)
  Sender: FDA-Public Use
  Company Number: US-AUROBINDO-AUR-APL-2021-009718

PATIENT
  Age: 45 Year
  Sex: Male

DRUGS (1)
  1. TRIMETHOPRIM+SULFAMETHOXAZOLE [Suspect]
     Active Substance: SULFAMETHOXAZOLE\TRIMETHOPRIM
     Indication: PRODUCT USED FOR UNKNOWN INDICATION
     Dosage: UNK
     Route: 065

REACTIONS (7)
  - Nikolsky^s sign [Unknown]
  - Stevens-Johnson syndrome [Unknown]
  - Rash [Unknown]
  - Lip ulceration [Unknown]
  - Skin exfoliation [Unknown]
  - Toxic epidermal necrolysis [Unknown]
  - Erythema [Unknown]
